FAERS Safety Report 4698637-8 (Version None)
Quarter: 2005Q2

REPORT INFORMATION
  Report Type: 
  Country: None (occurrence: None)
  Receive Date: 20050623
  Receipt Date: 20050317
  Transmission Date: 20051028
  Serious: Yes (Hospitalization)
  Sender: FDA-Public Use
  Company Number: NUBN20050008

PATIENT
  Age: 76 Year
  Sex: Female

DRUGS (6)
  1. NUBAIN [Suspect]
     Indication: COLONOSCOPY
     Dosage: 10 MG ONCE IV
     Route: 042
     Dates: start: 20050304, end: 20050304
  2. NUBAIN [Suspect]
     Indication: SEDATION
     Dosage: 10 MG ONCE IV
     Route: 042
     Dates: start: 20050304, end: 20050304
  3. MIDAZOLAM HCL [Suspect]
     Indication: COLONOSCOPY
     Dosage: 5 MG ONCE IV
     Route: 042
     Dates: start: 20050304, end: 20050304
  4. MIDAZOLAM HCL [Suspect]
     Indication: SEDATION
     Dosage: 5 MG ONCE IV
     Route: 042
     Dates: start: 20050304, end: 20050304
  5. PROPOFOL [Suspect]
     Indication: COLONOSCOPY
     Dosage: 40 MG ONCE IV
     Route: 042
     Dates: start: 20050304, end: 20050304
  6. PROPOFOL [Suspect]
     Indication: SEDATION
     Dosage: 40 MG ONCE IV
     Route: 042
     Dates: start: 20050304, end: 20050304

REACTIONS (2)
  - NAUSEA [None]
  - VOMITING [None]
